FAERS Safety Report 7947271-2 (Version None)
Quarter: 2011Q4

REPORT INFORMATION
  Report Type: 
  Country: None (occurrence: None)
  Receive Date: 20111129
  Receipt Date: 20111112
  Transmission Date: 20120403
  Serious: Yes (Disabling)
  Sender: FDA-Public Use
  Company Number: DK-ASTRAZENECA-2011SE71752

PATIENT
  Age: 21 Year
  Sex: Female

DRUGS (2)
  1. MARCAINE [Suspect]
     Indication: ARTHRALGIA
     Dates: start: 20081127, end: 20081127
  2. LEDERSPAN [Suspect]
     Indication: ARTHRALGIA
     Dates: start: 20081127, end: 20081127

REACTIONS (3)
  - SKIN DISCOLOURATION [None]
  - ARTHRALGIA [None]
  - SKIN DISORDER [None]
